FAERS Safety Report 16121068 (Version 1)
Quarter: 2019Q1

REPORT INFORMATION
  Report Type: Spontaneous
  Country: PT (occurrence: PT)
  Receive Date: 20190327
  Receipt Date: 20190327
  Transmission Date: 20190418
  Serious: Yes (Other)
  Sender: FDA-Public Use
  Company Number: PT-009507513-1903PRT007637

PATIENT
  Age: 57 Year
  Sex: Male

DRUGS (4)
  1. KAINEVER [Concomitant]
     Active Substance: ESTAZOLAM
  2. RIBAVIRIN. [Suspect]
     Active Substance: RIBAVIRIN
     Indication: CHRONIC HEPATITIS C
     Dosage: UNK
     Route: 065
     Dates: start: 20150523, end: 20151106
  3. SOVALDI [Suspect]
     Active Substance: SOFOSBUVIR
     Indication: CHRONIC HEPATITIS C
     Dosage: UNK
     Route: 065
     Dates: start: 20150523, end: 20151106
  4. VICTAN [Concomitant]
     Active Substance: ETHYL LOFLAZEPATE

REACTIONS (2)
  - Hepatitis C [Unknown]
  - Drug ineffective [Unknown]
